FAERS Safety Report 22280497 (Version 1)
Quarter: 2023Q2

REPORT INFORMATION
  Report Type: Spontaneous
  Country: US (occurrence: None)
  Receive Date: 20230502
  Receipt Date: 20230502
  Transmission Date: 20230721
  Serious: Yes (Life-Threatening, Hospitalization, Disabling)
  Sender: FDA-Public Use
  Company Number: None

PATIENT
  Age: 84 Year
  Sex: Female
  Weight: 69.8 kg

DRUGS (1)
  1. HEPARIN [Suspect]
     Active Substance: HEPARIN SODIUM
     Indication: Acute myocardial infarction
     Dosage: OTHER FREQUENCY : 800 UNITS/HR;?
     Route: 041

REACTIONS (6)
  - Unresponsive to stimuli [None]
  - Cerebrovascular accident [None]
  - Cerebral infarction [None]
  - Renal failure [None]
  - Haemorrhagic infarction [None]
  - Cerebral mass effect [None]

NARRATIVE: CASE EVENT DATE: 20230425
